FAERS Safety Report 8812281 (Version 1)
Quarter: 2012Q4

REPORT INFORMATION
  Report Type: Spontaneous
  Country: AU (occurrence: None)
  Receive Date: 20120925
  Receipt Date: 20120925
  Transmission Date: 20130627
  Serious: Yes (Other)
  Sender: FDA-Public Use
  Company Number: FK201202747

PATIENT
  Sex: Male

DRUGS (6)
  1. DEXAMETHASONE INJECTION (MANUFACTURER UNKNOWN)(DEXAMETHASONE SODIUM PHOSPHATE)(DEXAMETHASONE SODIUM^PHOSPHATE) [Suspect]
  2. BEVACIZUMAB [Concomitant]
  3. TEMOZOLOMIDE [Concomitant]
  4. LOMUSTINE [Concomitant]
  5. PROCARBAZINE [Concomitant]
  6. IRINOTECAN [Concomitant]

REACTIONS (4)
  - Ulcer [None]
  - Abdominal wound dehiscence [None]
  - Neurological decompensation [None]
  - Muscular weakness [None]
